FAERS Safety Report 17529217 (Version 5)
Quarter: 2022Q3

REPORT INFORMATION
  Report Type: Report from Study
  Country: CA (occurrence: CA)
  Receive Date: 20200311
  Receipt Date: 20220708
  Transmission Date: 20221026
  Serious: Yes (Hospitalization)
  Sender: FDA-Public Use
  Company Number: CA-GLAXOSMITHKLINE-CA2020AMR042677

PATIENT

DRUGS (2)
  1. MEPOLIZUMAB [Suspect]
     Active Substance: MEPOLIZUMAB
     Indication: Asthma
     Dosage: 100 MG, Z, EVERY 4 WEEKS
     Route: 058
     Dates: start: 20191031
  2. VENTOLIN [Suspect]
     Active Substance: ALBUTEROL SULFATE
     Indication: Asthma
     Dosage: UNK

REACTIONS (11)
  - Hospitalisation [Unknown]
  - Asthma [Unknown]
  - Chest pain [Unknown]
  - Asthenia [Unknown]
  - Wheezing [Unknown]
  - Cough [Unknown]
  - Dizziness [Unknown]
  - Full blood count abnormal [Unknown]
  - Thalassaemia [Unknown]
  - Haemoglobinopathy [Unknown]
  - Product use issue [Unknown]
